FAERS Safety Report 25575086 (Version 1)
Quarter: 2025Q3

REPORT INFORMATION
  Report Type: Spontaneous
  Country: JP (occurrence: None)
  Receive Date: 20250718
  Receipt Date: 20250718
  Transmission Date: 20251020
  Serious: Yes (Death)
  Sender: ALEXION PHARMACEUTICALS
  Company Number: JP-ASTRAZENECA-202507JPN010670JP

PATIENT
  Age: 76 Year
  Sex: Male

DRUGS (2)
  1. IMFINZI [Suspect]
     Active Substance: DURVALUMAB
     Indication: Cholangiocarcinoma
     Route: 065
  2. IMFINZI [Suspect]
     Active Substance: DURVALUMAB
     Indication: Metastases to peritoneum

REACTIONS (1)
  - Renal impairment [Fatal]
